FAERS Safety Report 9723748 (Version 1)
Quarter: 2013Q4

REPORT INFORMATION
  Report Type: Spontaneous
  Country: MX (occurrence: MX)
  Receive Date: 20131202
  Receipt Date: 20131202
  Transmission Date: 20140711
  Serious: Yes (Other)
  Sender: FDA-Public Use
  Company Number: PHHY2013MX139674

PATIENT
  Age: 68 Year
  Sex: Female

DRUGS (3)
  1. ACLASTA [Suspect]
     Indication: OSTEOPOROSIS
     Dosage: 5 MG/100 ML, ANNUALLY
     Route: 042
     Dates: start: 20121012
  2. OGASTRO [Concomitant]
     Indication: GASTRITIS
     Dosage: 1 DF,1 TABLET
     Dates: start: 2011
  3. EVISTA [Concomitant]
     Indication: OSTEOPOROSIS
     Dosage: 1 UKN, UNK

REACTIONS (9)
  - Bronchitis [Not Recovered/Not Resolved]
  - Ear disorder [Unknown]
  - Oropharyngeal pain [Unknown]
  - Dysphonia [Unknown]
  - Weight decreased [Unknown]
  - Dizziness [Not Recovered/Not Resolved]
  - Fatigue [Recovered/Resolved]
  - Back pain [Unknown]
  - Cough [Unknown]
